FAERS Safety Report 5773007-X (Version None)
Quarter: 2008Q2

REPORT INFORMATION
  Report Type: 
  Country: None (occurrence: None)
  Receive Date: 20080613
  Receipt Date: 20080605
  Transmission Date: 20081010
  Serious: Yes (Other)
  Sender: FDA-Public Use
  Company Number: BR-PFIZER INC-2008048255

PATIENT
  Sex: Female
  Weight: 94.5 kg

DRUGS (8)
  1. LIPITOR [Suspect]
     Indication: BLOOD TRIGLYCERIDES INCREASED
     Route: 048
  2. RIVOTRIL [Concomitant]
  3. NIMESULIDE [Concomitant]
  4. PARA-SELTZER [Concomitant]
  5. SLOW-K [Concomitant]
  6. RANITIDINE [Concomitant]
  7. BENERVA [Concomitant]
  8. VITAMIN B COMPLEX CAP [Concomitant]

REACTIONS (4)
  - CHANGE OF BOWEL HABIT [None]
  - FAECES HARD [None]
  - HAEMATOCHEZIA [None]
  - PAINFUL DEFAECATION [None]
